FAERS Safety Report 5397574-3 (Version None)
Quarter: 2007Q3

REPORT INFORMATION
  Report Type: 
  Country: None (occurrence: None)
  Receive Date: 20070726
  Receipt Date: 20070717
  Transmission Date: 20080115
  Serious: Yes (Other)
  Sender: FDA-Public Use
  Company Number: DE-ROCHE-504658

PATIENT
  Age: 71 Year
  Sex: Female
  Weight: 78 kg

DRUGS (2)
  1. XELODA [Suspect]
     Dosage: DOSE REPORTED: 2000 DAILY
     Route: 048
     Dates: start: 20070530, end: 20070628
  2. 1 CONCOMITANT DRUG [Concomitant]
     Dosage: RADIATION THERAPY FOR UNKNOWN INDICATION.

REACTIONS (5)
  - ABDOMINAL PAIN UPPER [None]
  - DIARRHOEA [None]
  - GASTRIC DISORDER [None]
  - GASTRITIS [None]
  - GINGIVITIS [None]
